FAERS Safety Report 6085704-X (Version None)
Quarter: 2009Q1

REPORT INFORMATION
  Report Type: 
  Country: None (occurrence: None)
  Receive Date: 20090220
  Receipt Date: 20090215
  Transmission Date: 20090719
  Serious: Yes (Other)
  Sender: FDA-Public Use
  Company Number: KP-GENENTECH-276854

PATIENT
  Age: 29 Year
  Sex: Male

DRUGS (2)
  1. MABTHERA [Suspect]
     Indication: TRANSPLANT REJECTION
     Dosage: 500 MG, 2/WEEK
  2. THYMOGLOBULIN [Suspect]
     Indication: TRANSPLANT REJECTION
     Dosage: 125 MG, QD

REACTIONS (1)
  - LEUKOPENIA [None]
